FAERS Safety Report 8250078-2 (Version None)
Quarter: 2012Q1

REPORT INFORMATION
  Report Type: 
  Country: None (occurrence: None)
  Receive Date: 20120319
  Receipt Date: 20100601
  Transmission Date: 20120608
  Serious: Yes (Other)
  Sender: FDA-Public Use
  Company Number: PHHY2010US35721

PATIENT
  Age: 69 Year
  Sex: Male

DRUGS (1)
  1. TEKTURNA HCT [Suspect]
     Indication: HYPERTENSION
     Dosage: 300/12.5 MG QD

REACTIONS (1)
  - HYPERKALAEMIA [None]
